FAERS Safety Report 6654128-6 (Version None)
Quarter: 2010Q1

REPORT INFORMATION
  Report Type: 
  Country: None (occurrence: None)
  Receive Date: 20100326
  Receipt Date: 20100316
  Transmission Date: 20100710
  Serious: Yes (Other)
  Sender: FDA-Public Use
  Company Number: FR-PFIZER INC-2010033354

PATIENT
  Sex: Female

DRUGS (2)
  1. CHAMPIX [Suspect]
     Dosage: 1 MG, 2X/DAY
     Dates: start: 20100201
  2. CHAMPIX [Suspect]
     Dosage: 1.0 MG, 1X/DAY
     Dates: end: 20100312

REACTIONS (7)
  - DIARRHOEA [None]
  - DRY MOUTH [None]
  - FATIGUE [None]
  - GASTROINTESTINAL DISORDER [None]
  - GASTROINTESTINAL PAIN [None]
  - HAEMATOCHEZIA [None]
  - NAUSEA [None]
